FAERS Safety Report 14018355 (Version 1)
Quarter: 2017Q3

REPORT INFORMATION
  Report Type: Spontaneous
  Country: US (occurrence: US)
  Receive Date: 20170928
  Receipt Date: 20170928
  Transmission Date: 20171128
  Serious: No
  Sender: FDA-Public Use
  Company Number: US-TEVA-717552ACC

PATIENT
  Age: 54 Year
  Sex: Female
  Weight: 63.56 kg

DRUGS (4)
  1. DIVALPROEX SODER [Concomitant]
     Dosage: 500 MILLIGRAM DAILY;
  2. WELLBUTRIN HCL XL 150 [Concomitant]
  3. NEFAZODONE HYDROCHLORIDE TABLETS, USP [Suspect]
     Active Substance: NEFAZODONE HYDROCHLORIDE
     Indication: DEPRESSION
     Dosage: 200 MILLIGRAM DAILY;
     Dates: start: 20161121, end: 20170221
  4. LEVOTHYROXIN [Concomitant]
     Active Substance: LEVOTHYROXINE
     Dosage: 25 MICROGRAM DAILY;

REACTIONS (6)
  - Paraesthesia [Not Recovered/Not Resolved]
  - Abnormal dreams [Unknown]
  - Anxiety [Not Recovered/Not Resolved]
  - Insomnia [Not Recovered/Not Resolved]
  - Abdominal discomfort [Unknown]
  - Nervousness [Unknown]

NARRATIVE: CASE EVENT DATE: 20161002
